FAERS Safety Report 7811632-2 (Version None)
Quarter: 2011Q4

REPORT INFORMATION
  Report Type: 
  Country: None (occurrence: None)
  Receive Date: 20111013
  Receipt Date: 20111007
  Transmission Date: 20120403
  Serious: Yes (Hospitalization, Other)
  Sender: FDA-Public Use
  Company Number: FR-PFIZER INC-2011239513

PATIENT
  Age: 61 Year
  Sex: Male

DRUGS (5)
  1. IMODIUM [Suspect]
     Dosage: 3 DOSAGE FORMS DAILY IF NEEDED
  2. LYRICA [Suspect]
     Dosage: 25 MG, 2X/DAY
  3. DEXERYL [Concomitant]
     Dosage: UNK
  4. ATARAX [Suspect]
     Dosage: 25 MG, 3X/DAY
  5. VALGANCICLOVIR [Suspect]
     Dosage: 450 MG, 2X/DAY

REACTIONS (10)
  - PYREXIA [None]
  - DRUG ERUPTION [None]
  - BREATH SOUNDS ABNORMAL [None]
  - BLOOD UREA INCREASED [None]
  - HAEMOGLOBIN DECREASED [None]
  - THROMBOCYTOPENIA [None]
  - BLOOD LACTATE DEHYDROGENASE INCREASED [None]
  - DERMATITIS CONTACT [None]
  - BLOOD ALBUMIN INCREASED [None]
  - TOXIC SKIN ERUPTION [None]
